FAERS Safety Report 5203719-8 (Version None)
Quarter: 2007Q1

REPORT INFORMATION
  Report Type: 
  Country: None (occurrence: None)
  Receive Date: 20070109
  Receipt Date: 20070109
  Transmission Date: 20070707
  Serious: Yes (Life-Threatening, Hospitalization)
  Sender: FDA-Public Use
  Company Number: None

PATIENT
  Age: 8 Year
  Sex: Male
  Weight: 23.587 kg

DRUGS (2)
  1. ABILIFY [Suspect]
     Indication: AFFECTIVE DISORDER
     Dosage: ONE TABLET, DOSE? ONCE A DAY PO
     Route: 048
     Dates: start: 20060218, end: 20060220
  2. ABILIFY [Suspect]
     Indication: ATTENTION DEFICIT/HYPERACTIVITY DISORDER
     Dosage: ONE TABLET, DOSE? ONCE A DAY PO
     Route: 048
     Dates: start: 20060218, end: 20060220

REACTIONS (15)
  - ANOREXIA [None]
  - ASTHENIA [None]
  - DYSKINESIA [None]
  - EYE DISORDER [None]
  - GENERAL PHYSICAL HEALTH DETERIORATION [None]
  - HYPERHIDROSIS [None]
  - MUSCULOSKELETAL STIFFNESS [None]
  - NEGATIVE THOUGHTS [None]
  - PHARYNGITIS STREPTOCOCCAL [None]
  - PHARYNGOLARYNGEAL PAIN [None]
  - PYREXIA [None]
  - SALIVARY HYPERSECRETION [None]
  - SOMNOLENCE [None]
  - SWOLLEN TONGUE [None]
  - TRISMUS [None]
